FAERS Safety Report 25244792 (Version 2)
Quarter: 2025Q2

REPORT INFORMATION
  Report Type: Spontaneous
  Country: JP (occurrence: JP)
  Receive Date: 20250428
  Receipt Date: 20250501
  Transmission Date: 20250717
  Serious: Yes (Other)
  Sender: NOVARTIS
  Company Number: JP-002147023-NVSJ2025JP004739

PATIENT
  Age: 63 Year
  Sex: Male

DRUGS (3)
  1. CYCLOSPORINE [Interacting]
     Active Substance: CYCLOSPORINE
     Indication: Pernicious anaemia
     Dosage: UNK UNK, BID (ADMINISTERED AT 10:00 AND 21:00)
     Route: 048
  2. ISAVUCONAZONIUM SULFATE [Interacting]
     Active Substance: ISAVUCONAZONIUM SULFATE
     Indication: Bronchopulmonary aspergillosis
     Dosage: UNK UNK, QD (ADMINISTERED AT APPROXIMATELY 8:00)
     Route: 048
  3. VORICONAZOLE [Concomitant]
     Active Substance: VORICONAZOLE
     Indication: Bronchopulmonary aspergillosis
     Dosage: UNK UNK, BID (ADMINISTERED AT 10:00 AND 21:00)
     Route: 048

REACTIONS (5)
  - Bronchopulmonary aspergillosis [Unknown]
  - Immunosuppressant drug level decreased [Unknown]
  - Drug interaction [Unknown]
  - Drug level decreased [Unknown]
  - Off label use [Unknown]
